FAERS Safety Report 20723475 (Version 1)
Quarter: 2022Q2

REPORT INFORMATION
  Report Type: Spontaneous
  Country: US (occurrence: US)
  Receive Date: 20220419
  Receipt Date: 20220419
  Transmission Date: 20220721
  Serious: No
  Sender: FDA-Public Use
  Company Number: US-GSKCCFUS-Case-01348058_AE-78159

PATIENT
  Age: 55 Year
  Sex: Female

DRUGS (2)
  1. NUCALA [Suspect]
     Active Substance: MEPOLIZUMAB
     Indication: Product used for unknown indication
     Dosage: UNK
     Dates: start: 202111
  2. CORTISONE ACETATE [Suspect]
     Active Substance: CORTISONE ACETATE
     Indication: Product used for unknown indication
     Dosage: UNK
     Dates: start: 20220404

REACTIONS (4)
  - Intervertebral disc protrusion [Unknown]
  - Back pain [Unknown]
  - Sciatica [Unknown]
  - Muscle tightness [Unknown]

NARRATIVE: CASE EVENT DATE: 20211201
